FAERS Safety Report 8061006-7 (Version None)
Quarter: 2012Q1

REPORT INFORMATION
  Report Type: 
  Country: None (occurrence: None)
  Receive Date: 20120120
  Receipt Date: 20120111
  Transmission Date: 20120608
  Serious: Yes (Other)
  Sender: FDA-Public Use
  Company Number: CHPA2012US001219

PATIENT
  Sex: Male
  Weight: 67.12 kg

DRUGS (14)
  1. ORUDIS [Suspect]
     Indication: OSTEOARTHRITIS
     Dosage: UNK, UNK
  2. VOLTAREN [Suspect]
     Indication: OSTEOARTHRITIS
     Dosage: UNK, UNK
     Route: 061
  3. FLECTOR [Suspect]
     Indication: OSTEOARTHRITIS
     Dosage: UNK, UNK
     Route: 062
  4. CELEBREX [Suspect]
     Indication: OSTEOARTHRITIS
     Dosage: 200 MG, QD
     Route: 048
  5. VIOXX [Suspect]
     Indication: OSTEOARTHRITIS
     Dosage: UNK, UNK
  6. SINEMET [Concomitant]
     Indication: PARKINSON'S DISEASE
     Dosage: UNK, QD
     Route: 048
  7. CELEBREX [Suspect]
     Dosage: 200 MG, BID
     Route: 048
  8. CORTISONE ACETATE [Concomitant]
  9. TRICOR [Concomitant]
     Indication: BLOOD TRIGLYCERIDES ABNORMAL
     Dosage: 145 MG, QD
  10. ALTACE [Suspect]
     Indication: HYPERTENSION
     Dosage: 5 MG, QD
  11. ARICEPT [Concomitant]
     Indication: PARKINSON'S DISEASE
     Dosage: 10 MG, QD
  12. ICY HOT [Suspect]
     Indication: OSTEOARTHRITIS
     Route: 062
  13. DRUG THERAPY NOS [Suspect]
     Indication: OSTEOARTHRITIS
     Dosage: UNK, UNK
  14. CYMBALTA [Concomitant]
     Indication: DEPRESSION
     Dosage: 60 MG, QD

REACTIONS (8)
  - LOSS OF CONSCIOUSNESS [None]
  - DRUG INEFFECTIVE [None]
  - ABDOMINAL DISCOMFORT [None]
  - MALAISE [None]
  - SOMNOLENCE [None]
  - BLOOD PRESSURE DECREASED [None]
  - NAUSEA [None]
  - DRUG ADMINISTERED AT INAPPROPRIATE SITE [None]
